FAERS Safety Report 14363546 (Version 2)
Quarter: 2018Q2

REPORT INFORMATION
  Report Type: Report from Study
  Country: CA (occurrence: CA)
  Receive Date: 20180108
  Receipt Date: 20180430
  Transmission Date: 20180711
  Serious: Yes (Other)
  Sender: FDA-Public Use
  Company Number: CA-JNJFOC-20180106232

PATIENT
  Sex: Male
  Weight: 74.84 kg

DRUGS (1)
  1. STELARA [Suspect]
     Active Substance: USTEKINUMAB
     Indication: PSORIASIS
     Dosage: STRENGTH = 90 MG
     Route: 058

REACTIONS (3)
  - Bladder cancer [Unknown]
  - Drug prescribing error [Unknown]
  - Off label use [Unknown]
